FAERS Safety Report 4541918-9 (Version None)
Quarter: 2004Q4

REPORT INFORMATION
  Report Type: 
  Country: None (occurrence: None)
  Receive Date: 20041229
  Receipt Date: 20041229
  Transmission Date: 20050328
  Serious: Yes (Hospitalization)
  Sender: FDA-Public Use
  Company Number: None

PATIENT
  Sex: Female
  Weight: 66.9 kg

DRUGS (6)
  1. RAPAMYCIN   1 MG [Suspect]
     Indication: BILE DUCT CANCER
     Dosage: 1 MG Q WEEK ORAL
     Route: 048
     Dates: start: 20041103, end: 20041215
  2. KETOCONAZOLE [Suspect]
     Indication: BILE DUCT CANCER
     Dosage: 200 MG  5 X PER WEEK ORAL
     Route: 048
     Dates: start: 20041109, end: 20041215
  3. PROTONIX [Concomitant]
  4. ZETIA [Concomitant]
  5. AVALIDE [Concomitant]
  6. IRON [Concomitant]

REACTIONS (6)
  - BLOOD CULTURE POSITIVE [None]
  - CULTURE URINE POSITIVE [None]
  - ESCHERICHIA INFECTION [None]
  - KLEBSIELLA INFECTION [None]
  - NEUTROPHIL COUNT INCREASED [None]
  - PYREXIA [None]
